FAERS Safety Report 12090903 (Version 1)
Quarter: 2016Q1

REPORT INFORMATION
  Report Type: Spontaneous
  Country: US (occurrence: US)
  Receive Date: 20160218
  Receipt Date: 20160218
  Transmission Date: 20160526
  Serious: No
  Sender: FDA-Public Use
  Company Number: US-SHIRE-US201601670

PATIENT
  Sex: Male

DRUGS (1)
  1. AGRYLIN [Suspect]
     Active Substance: ANAGRELIDE HYDROCHLORIDE
     Indication: THROMBOCYTOSIS
     Dosage: UNK, UNKNOWN
     Route: 048
     Dates: start: 2010

REACTIONS (3)
  - Splenomegaly [Unknown]
  - Platelet count increased [Not Recovered/Not Resolved]
  - Peripheral swelling [Unknown]
